FAERS Safety Report 7097854-X (Version None)
Quarter: 2010Q4

REPORT INFORMATION
  Report Type: 
  Country: None (occurrence: None)
  Receive Date: 20101112
  Receipt Date: 20101019
  Transmission Date: 20110411
  Serious: Yes (Hospitalization, Other)
  Sender: FDA-Public Use
  Company Number: US-BAYER-201017060NA

PATIENT
  Age: 26 Year
  Sex: Female
  Weight: 102 kg

DRUGS (14)
  1. YAZ [Suspect]
     Indication: CONTRACEPTION
     Route: 048
     Dates: start: 20070626, end: 20100101
  2. YASMIN [Suspect]
     Indication: CONTRACEPTION
     Route: 048
     Dates: start: 20070626, end: 20080605
  3. OCELLA [Suspect]
     Indication: CONTRACEPTION
     Route: 048
     Dates: start: 20080709, end: 20090727
  4. PREVIFEM [Concomitant]
     Dates: start: 20070608, end: 20070619
  5. METFORMIN HCL [Concomitant]
     Indication: INSULIN RESISTANCE
     Route: 048
     Dates: start: 20070601
  6. ALBUTEROL [Concomitant]
     Indication: ASTHMA
  7. ACETAMINOPHEN [Concomitant]
  8. IBUPROFEN [Concomitant]
     Dosage: TOTAL DAILY DOSE: 400 MG  UNIT DOSE: 200 MG
  9. MOTRIN [Concomitant]
  10. SPIRONOLACTONE [Concomitant]
     Indication: HIRSUTISM
     Dosage: TOTAL DAILY DOSE: 25 MG  UNIT DOSE: 25 MG
     Route: 048
     Dates: start: 20070101, end: 20080101
  11. ASPIRIN [Concomitant]
  12. PERCOCET [Concomitant]
     Indication: PAIN
     Dosage: Q 4HOURS
  13. AZITHROMYCIN [Concomitant]
  14. OXYCO/APAP [Concomitant]
     Dosage: 7.5/500 MG

REACTIONS (6)
  - ABDOMINAL PAIN [None]
  - ABDOMINAL PAIN UPPER [None]
  - BILIARY DYSKINESIA [None]
  - CHOLELITHIASIS [None]
  - DIARRHOEA [None]
  - GALLBLADDER NON-FUNCTIONING [None]
